FAERS Safety Report 6099423-7 (Version None)
Quarter: 2009Q1

REPORT INFORMATION
  Report Type: 
  Country: None (occurrence: None)
  Receive Date: 20090225
  Receipt Date: 20090225
  Transmission Date: 20090719
  Serious: Yes (Other)
  Sender: FDA-Public Use
  Company Number: None

PATIENT
  Age: 90 Year
  Sex: Female
  Weight: 45 kg

DRUGS (1)
  1. CIPROFLOXACIN [Suspect]
     Indication: INFECTION
     Dosage: 400MG IV BOLUS
     Route: 040
     Dates: start: 20080825, end: 20080825

REACTIONS (2)
  - INJECTION SITE STREAKING [None]
  - PRURITUS GENERALISED [None]
